FAERS Safety Report 23258835 (Version 1)
Quarter: 2023Q4

REPORT INFORMATION
  Report Type: Spontaneous
  Country: CN (occurrence: CN)
  Receive Date: 20231204
  Receipt Date: 20231204
  Transmission Date: 20240109
  Serious: Yes (Other)
  Sender: FDA-Public Use
  Company Number: CN-SA-SAC20231201000047

PATIENT
  Age: 79 Year
  Sex: Male

DRUGS (1)
  1. OXALIPLATIN [Suspect]
     Active Substance: OXALIPLATIN
     Indication: Neoplasm malignant
     Dosage: 130 MG/M2, Q3W
     Route: 065
     Dates: start: 20231103, end: 20231103

REACTIONS (4)
  - Chest pain [Recovering/Resolving]
  - Back pain [Recovering/Resolving]
  - Chest discomfort [Recovering/Resolving]
  - Feeling cold [Recovering/Resolving]

NARRATIVE: CASE EVENT DATE: 20231103
